FAERS Safety Report 13387979 (Version 1)
Quarter: 2017Q1

REPORT INFORMATION
  Report Type: Spontaneous
  Country: IN (occurrence: IN)
  Receive Date: 20170330
  Receipt Date: 20170330
  Transmission Date: 20170429
  Serious: Yes (Hospitalization, Other)
  Sender: FDA-Public Use
  Company Number: IN-BAUSCH-BL-2017-008249

PATIENT
  Age: 70 Year
  Sex: Male

DRUGS (5)
  1. DEXAMETHASONE. [Suspect]
     Active Substance: DEXAMETHASONE
     Indication: DIABETIC RETINAL OEDEMA
     Route: 065
  2. POVIDONE-IODINE. [Concomitant]
     Active Substance: POVIDONE-IODINE
  3. MOXIFLOXACIN. [Concomitant]
     Active Substance: MOXIFLOXACIN
     Indication: PRODUCT USED FOR UNKNOWN INDICATION
     Dosage: INSTILLED PRIOR TO THE INJECTION AS WELL AS AT THE END OF THE PROCEDURE
  4. MOXIFLOXACIN. [Concomitant]
     Active Substance: MOXIFLOXACIN
     Dosage: PRESCRIBED FOR A WEEK
     Route: 065
  5. POVIDONE-IODINE. [Concomitant]
     Active Substance: POVIDONE-IODINE
     Indication: PRODUCT USED FOR UNKNOWN INDICATION

REACTIONS (3)
  - Vitreous opacities [Recovered/Resolved]
  - Blindness [Recovered/Resolved]
  - Endophthalmitis [Recovered/Resolved]
